FAERS Safety Report 18692864 (Version 1)
Quarter: 2021Q1

REPORT INFORMATION
  Report Type: Spontaneous
  Country: US (occurrence: US)
  Receive Date: 20210104
  Receipt Date: 20210104
  Transmission Date: 20210419
  Serious: No
  Sender: FDA-Public Use
  Company Number: US-MTPC-MTDA2020-0074139

PATIENT
  Sex: Female

DRUGS (1)
  1. RADICAVA [Suspect]
     Active Substance: EDARAVONE
     Indication: AMYOTROPHIC LATERAL SCLEROSIS
     Dosage: UNK
     Route: 065
     Dates: start: 201906

REACTIONS (8)
  - Pain in extremity [Unknown]
  - Aphasia [Not Recovered/Not Resolved]
  - Headache [Unknown]
  - Limb discomfort [Unknown]
  - Abdominal pain upper [Unknown]
  - Dehydration [Unknown]
  - Feeding tube user [Unknown]
  - Nausea [Unknown]

NARRATIVE: CASE EVENT DATE: 202012
